FAERS Safety Report 11998322 (Version 10)
Quarter: 2016Q4

REPORT INFORMATION
  Report Type: Report from Study
  Country: BR (occurrence: BR)
  Receive Date: 20160203
  Receipt Date: 20161031
  Transmission Date: 20170206
  Serious: Yes (Death, Life-Threatening, Hospitalization)
  Sender: FDA-Public Use
  Company Number: PHHO2016BR001630

PATIENT
  Age: 56 Year
  Sex: Male
  Weight: 105.9 kg

DRUGS (15)
  1. SILDENAFIL CITRATE. [Concomitant]
     Active Substance: SILDENAFIL CITRATE
     Indication: ERECTILE DYSFUNCTION
     Dosage: 25 MG, QD
     Route: 048
     Dates: start: 20140506
  2. ASA [Concomitant]
     Active Substance: ASPIRIN
     Indication: CORONARY ARTERY DISEASE
     Dosage: 100 MG, QD
     Route: 048
     Dates: start: 2003
  3. GINKGO BILOBA [Concomitant]
     Active Substance: GINKGO
     Indication: LABYRINTHITIS
     Dosage: 80 MG, BID
     Route: 048
     Dates: start: 20150826, end: 20150826
  4. SINVASTATIN [Concomitant]
     Active Substance: SIMVASTATIN
     Indication: DYSLIPIDAEMIA
     Dosage: 40 MG, QD
     Route: 048
     Dates: start: 2003, end: 20131029
  5. HYDROCHLOORTHIAZIDE [Concomitant]
     Active Substance: HYDROCHLOROTHIAZIDE
     Indication: HYPERTENSION
     Dosage: 25 MG, QD
     Route: 048
     Dates: start: 20140730
  6. VITAMIN B COMPLEX [Concomitant]
     Active Substance: CYANOCOBALAMIN\DEXPANTHENOL\NIACINAMIDE\PYRIDOXINE HYDROCHLORIDE\RIBOFLAVIN 5^-PHOSPHATE SODIUM\THIAMINE HYDROCHLORIDE\VITAMIN B COMPLEX
     Indication: LABYRINTHITIS
     Dosage: QD
     Route: 048
     Dates: start: 20150818, end: 20150826
  7. VITAMIN B COMPLEX [Concomitant]
     Active Substance: CYANOCOBALAMIN\DEXPANTHENOL\NIACINAMIDE\PYRIDOXINE HYDROCHLORIDE\RIBOFLAVIN 5^-PHOSPHATE SODIUM\THIAMINE HYDROCHLORIDE\VITAMIN B COMPLEX
     Indication: PARAESTHESIA
  8. ATENOLOL. [Concomitant]
     Active Substance: ATENOLOL
     Indication: HYPERTENSION
     Dosage: 50 MG, BID
     Route: 048
     Dates: start: 20111208, end: 20140730
  9. IZONIAZID [Concomitant]
     Active Substance: ISONIAZID
     Indication: LATENT TUBERCULOSIS
     Dosage: 300 MG, QD
     Route: 048
     Dates: start: 20130927, end: 20131017
  10. ENALAPRIL [Concomitant]
     Active Substance: ENALAPRIL
     Indication: HYPERTENSION
     Dosage: 20 MG, BID
     Route: 048
     Dates: start: 2003
  11. ATORVASTATIN [Concomitant]
     Active Substance: ATORVASTATIN
     Indication: DYSLIPIDAEMIA
     Dosage: 80 MG, QD
     Route: 048
     Dates: start: 20131029
  12. GINKGO BILOBA [Concomitant]
     Active Substance: GINKGO
     Indication: DIZZINESS
  13. ACZ885 [Suspect]
     Active Substance: CANAKINUMAB
     Indication: CARDIOVASCULAR EVENT PROPHYLAXIS
     Dosage: 300 MG, UNK
     Route: 058
     Dates: start: 20131029, end: 20151103
  14. ATENOLOL. [Concomitant]
     Active Substance: ATENOLOL
     Dosage: 20 MG, BID
     Route: 048
     Dates: start: 20140731, end: 20150226
  15. ATENOLOL. [Concomitant]
     Active Substance: ATENOLOL
     Dosage: 20 MG, QD
     Route: 048
     Dates: start: 20150226, end: 20150228

REACTIONS (3)
  - Cerebral haematoma [Fatal]
  - Oligodendroglioma [Not Recovered/Not Resolved]
  - Shock [Fatal]

NARRATIVE: CASE EVENT DATE: 20151103
